FAERS Safety Report 14170354 (Version 1)
Quarter: 2017Q4

REPORT INFORMATION
  Report Type: Spontaneous
  Country: US (occurrence: None)
  Receive Date: 20171107
  Receipt Date: 20171107
  Transmission Date: 20180321
  Serious: Yes (Hospitalization)
  Sender: FDA-Public Use
  Company Number: None

PATIENT
  Age: 75 Year
  Sex: Male
  Weight: 57.7 kg

DRUGS (1)
  1. PEMBROLIZUMAB 200MG [Suspect]
     Active Substance: PEMBROLIZUMAB
     Indication: MYELOID LEUKAEMIA
     Route: 042
     Dates: start: 20171016

REACTIONS (13)
  - Pollakiuria [None]
  - Confusional state [None]
  - Fluid overload [None]
  - Gallbladder enlargement [None]
  - Mental status changes [None]
  - Venous pressure jugular increased [None]
  - Renal cyst [None]
  - Troponin increased [None]
  - Blood pressure increased [None]
  - Rash [None]
  - Central nervous system lesion [None]
  - Fatigue [None]
  - Blood bilirubin unconjugated increased [None]

NARRATIVE: CASE EVENT DATE: 20171030
